FAERS Safety Report 8557923-1 (Version None)
Quarter: 2012Q3

REPORT INFORMATION
  Report Type: 
  Country: None (occurrence: None)
  Receive Date: 20120801
  Receipt Date: 20120723
  Transmission Date: 20120928
  Serious: Yes (Other)
  Sender: FDA-Public Use
  Company Number: US-ASTRAZENECA-2012SE32264

PATIENT
  Age: 82 Year
  Sex: Female

DRUGS (8)
  1. SEROQUEL [Suspect]
     Route: 048
  2. SEROQUEL [Suspect]
     Dosage: 3 TABLET IN THE MORNING AND 3 TABLET AT NIGHT
     Route: 048
  3. SEROQUEL [Suspect]
     Indication: ANXIETY DISORDER
     Route: 048
  4. SEROQUEL [Suspect]
     Dosage: 3 TABLET IN THE MORNING AND 3 TABLET AT NIGHT
     Route: 048
  5. SEROQUEL [Suspect]
     Route: 048
  6. SEROQUEL [Suspect]
     Route: 048
  7. SEROQUEL [Suspect]
     Indication: NERVOUSNESS
     Route: 048
  8. SEROQUEL [Suspect]
     Route: 048

REACTIONS (8)
  - LOWER LIMB FRACTURE [None]
  - DRY MOUTH [None]
  - DRUG INEFFECTIVE FOR UNAPPROVED INDICATION [None]
  - CATARACT [None]
  - ANXIETY [None]
  - CONFUSIONAL STATE [None]
  - NERVOUSNESS [None]
  - OFF LABEL USE [None]
